FAERS Safety Report 10019654 (Version 2)
Quarter: 2014Q1

REPORT INFORMATION
  Report Type: Spontaneous
  Country: US (occurrence: US)
  Receive Date: 20140318
  Receipt Date: 20140318
  Transmission Date: 20141002
  Serious: Yes (Hospitalization)
  Sender: FDA-Public Use
  Company Number: US-ASTRAZENECA-2014SE14634

PATIENT
  Age: 434 Day
  Sex: Female

DRUGS (4)
  1. SYNAGIS [Suspect]
     Route: 030
  2. SYNAGIS [Suspect]
     Route: 030
  3. SYNAGIS [Suspect]
     Route: 030
  4. SYNAGIS [Suspect]
     Route: 030
     Dates: start: 20140224

REACTIONS (2)
  - Pneumonia aspiration [Unknown]
  - Pyrexia [Unknown]
